FAERS Safety Report 4501061-1 (Version None)
Quarter: 2004Q4

REPORT INFORMATION
  Report Type: 
  Country: None (occurrence: None)
  Receive Date: 20041109
  Receipt Date: 20041027
  Transmission Date: 20050328
  Serious: Yes (Other)
  Sender: FDA-Public Use
  Company Number: USA041079860

PATIENT
  Age: 15 Year
  Sex: Male
  Weight: 74 kg

DRUGS (3)
  1. STRATTERA [Suspect]
     Indication: ATTENTION DEFICIT/HYPERACTIVITY DISORDER
     Dosage: 80 MG DAY
     Dates: start: 20040626, end: 20040831
  2. ZOLOFT [Concomitant]
  3. CONCERTA [Concomitant]

REACTIONS (3)
  - AGITATION [None]
  - ANXIETY [None]
  - INTENTIONAL SELF-INJURY [None]
